FAERS Safety Report 7407160-9 (Version None)
Quarter: 2011Q2

REPORT INFORMATION
  Report Type: 
  Country: None (occurrence: None)
  Receive Date: 20110411
  Receipt Date: 20110322
  Transmission Date: 20111010
  Serious: No
  Sender: FDA-Public Use
  Company Number: US-B.I. PHARMACEUTICALS,INC./RIDGEFIELD-2010-BP-08244PF

PATIENT
  Sex: Male

DRUGS (6)
  1. COMBIVENT [Suspect]
  2. PROAIR HFA [Suspect]
  3. SPIRIVA [Suspect]
     Route: 055
  4. CHANTIX [Suspect]
  5. ALBUTEROL SULFATE AUTOHALER [Suspect]
     Route: 055
  6. PROTONIX [Suspect]

REACTIONS (1)
  - FALSE POSITIVE INVESTIGATION RESULT [None]
